FAERS Safety Report 20994304 (Version 2)
Quarter: 2022Q2

REPORT INFORMATION
  Report Type: Other
  Country: CZ (occurrence: CZ)
  Receive Date: 20220622
  Receipt Date: 20220630
  Transmission Date: 20220721
  Serious: Yes (Other)
  Sender: FDA-Public Use
  Company Number: None

PATIENT
  Age: 30 Year
  Sex: Female

DRUGS (1)
  1. IBUPROFEN [Suspect]
     Active Substance: IBUPROFEN
     Indication: Arthralgia
     Dosage: 3 GRAMS PER DAY (QD)
     Route: 065

REACTIONS (3)
  - Colitis microscopic [Recovered/Resolved]
  - Overdose [Recovered/Resolved]
  - Diarrhoea [Recovered/Resolved]
